FAERS Safety Report 14577329 (Version 1)
Quarter: 2018Q1

REPORT INFORMATION
  Report Type: Spontaneous
  Country: US (occurrence: US)
  Receive Date: 20180226
  Receipt Date: 20180226
  Transmission Date: 20180509
  Serious: Yes (Other)
  Sender: FDA-Public Use
  Company Number: None

PATIENT
  Sex: Female

DRUGS (21)
  1. SPIRIVA [Concomitant]
     Active Substance: TIOTROPIUM BROMIDE MONOHYDRATE
  2. BACLOFEN. [Concomitant]
     Active Substance: BACLOFEN
  3. DEXILANT [Concomitant]
     Active Substance: DEXLANSOPRAZOLE
  4. OMEPRAZOLE. [Concomitant]
     Active Substance: OMEPRAZOLE
  5. NITROSTAT [Concomitant]
     Active Substance: NITROGLYCERIN
  6. ASPIRIN. [Concomitant]
     Active Substance: ASPIRIN
  7. EXTAVIA [Suspect]
     Active Substance: INTERFERON BETA-1B
     Indication: MULTIPLE SCLEROSIS
     Dosage: ?          OTHER FREQUENCY:EVERY OTHER DAY;?
     Route: 058
     Dates: start: 20160120
  8. VITAMIN B12 [Concomitant]
     Active Substance: CYANOCOBALAMIN
  9. KEPPRA [Concomitant]
     Active Substance: LEVETIRACETAM
  10. BENAZEPRIL [Concomitant]
     Active Substance: BENAZEPRIL HYDROCHLORIDE
  11. PROBIOTIC [Concomitant]
     Active Substance: PROBIOTICS NOS
  12. ROPINIROLE. [Concomitant]
     Active Substance: ROPINIROLE
  13. GABAPENTIN. [Concomitant]
     Active Substance: GABAPENTIN
  14. FLONASE [Concomitant]
     Active Substance: FLUTICASONE PROPIONATE
  15. XANAX [Concomitant]
     Active Substance: ALPRAZOLAM
  16. VICODIN [Concomitant]
     Active Substance: ACETAMINOPHEN\HYDROCODONE BITARTRATE
  17. AMOXICILLIN. [Concomitant]
     Active Substance: AMOXICILLIN
  18. POTASSIUM CHLORIDE. [Concomitant]
     Active Substance: POTASSIUM CHLORIDE
  19. IBUPROFEN. [Concomitant]
     Active Substance: IBUPROFEN
  20. SPIRONOLACTONE. [Concomitant]
     Active Substance: SPIRONOLACTONE
  21. HYDROCODONE [Concomitant]
     Active Substance: HYDROCODONE

REACTIONS (3)
  - Diarrhoea [None]
  - Myalgia [None]
  - Cerebrovascular accident [None]
